FAERS Safety Report 14175796 (Version 3)
Quarter: 2018Q1

REPORT INFORMATION
  Report Type: Spontaneous
  Country: JP (occurrence: JP)
  Receive Date: 20171109
  Receipt Date: 20180322
  Transmission Date: 20180508
  Serious: Yes (Life-Threatening, Hospitalization, Other)
  Sender: FDA-Public Use
  Company Number: JP-BRISTOL-MYERS SQUIBB COMPANY-BMS-2017-095304

PATIENT
  Age: 62 Year
  Sex: Male
  Weight: 75.6 kg

DRUGS (2)
  1. YERVOY [Suspect]
     Active Substance: IPILIMUMAB
     Indication: MALIGNANT MELANOMA
     Dosage: 250 MG, UNK
     Route: 041
     Dates: start: 20170926, end: 20170926
  2. OMEPRAZOLE                         /00661202/ [Suspect]
     Active Substance: OMEPRAZOLE SODIUM
     Indication: PRODUCT USED FOR UNKNOWN INDICATION
     Route: 065

REACTIONS (8)
  - Adrenal insufficiency [Unknown]
  - Hypothyroidism [Unknown]
  - Pneumonia aspiration [Recovered/Resolved]
  - Liver disorder [Unknown]
  - Renal cyst [Unknown]
  - Malaise [Recovering/Resolving]
  - Platelet count decreased [Not Recovered/Not Resolved]
  - Septic embolus [Unknown]

NARRATIVE: CASE EVENT DATE: 20171003
